FAERS Safety Report 8457118-6 (Version None)
Quarter: 2012Q2

REPORT INFORMATION
  Report Type: 
  Country: None (occurrence: None)
  Receive Date: 20120621
  Receipt Date: 20120614
  Transmission Date: 20120825
  Serious: Yes (Other)
  Sender: FDA-Public Use
  Company Number: US-ROXANE LABORATORIES, INC.-2012-RO-01277RO

PATIENT
  Age: 83 Year

DRUGS (1)
  1. MORPHINE [Suspect]

REACTIONS (1)
  - DRUG INEFFECTIVE [None]
